FAERS Safety Report 21548992 (Version 1)
Quarter: 2022Q4

REPORT INFORMATION
  Report Type: Spontaneous
  Country: US (occurrence: None)
  Receive Date: 20221102
  Receipt Date: 20221102
  Transmission Date: 20230112
  Serious: Yes (Disabling, Congenital Anomaly, Other)
  Sender: FDA-Public Use
  Company Number: None

PATIENT
  Age: 25 Year
  Weight: 104.85 kg

DRUGS (4)
  1. ESCITALOPRAM [Suspect]
     Active Substance: ESCITALOPRAM OXALATE
  2. ARIPIPRAZOLE [Suspect]
     Active Substance: ARIPIPRAZOLE
  3. ABILIFY [Concomitant]
  4. LEXAPRO [Concomitant]
     Active Substance: ESCITALOPRAM OXALATE

REACTIONS (32)
  - Haematochezia [None]
  - Frequent bowel movements [None]
  - Feeling abnormal [None]
  - Pain [None]
  - Dyspnoea [None]
  - Hyperhidrosis [None]
  - Diarrhoea [None]
  - Faeces discoloured [None]
  - Faeces pale [None]
  - Haematemesis [None]
  - Fatigue [None]
  - Lethargy [None]
  - Confusional state [None]
  - Memory impairment [None]
  - Hypersomnia [None]
  - Decreased interest [None]
  - Hypophagia [None]
  - Abdominal pain [None]
  - Back pain [None]
  - Tenderness [None]
  - Feeling hot [None]
  - Nasopharyngitis [None]
  - Chills [None]
  - Haemoptysis [None]
  - Abdominal distension [None]
  - Weight fluctuation [None]
  - Flatulence [None]
  - Abortion spontaneous [None]
  - Loss of employment [None]
  - Dysgeusia [None]
  - Headache [None]
  - Migraine [None]

NARRATIVE: CASE EVENT DATE: 20201102
